FAERS Safety Report 5198947-4 (Version None)
Quarter: 2007Q1

REPORT INFORMATION
  Report Type: 
  Country: None (occurrence: None)
  Receive Date: 20070104
  Receipt Date: 20060628
  Transmission Date: 20070707
  Serious: Yes (Hospitalization)
  Sender: FDA-Public Use
  Company Number: JP-ROCHE-451624

PATIENT
  Age: 58 Year
  Sex: Male

DRUGS (11)
  1. PANALDINE [Suspect]
     Indication: MYOCARDIAL INFARCTION
     Route: 048
     Dates: start: 20060425, end: 20060530
  2. ASPIRIN [Concomitant]
     Route: 048
     Dates: start: 20060425, end: 20060530
  3. GASTER D [Concomitant]
     Route: 048
     Dates: start: 20060425, end: 20060516
  4. MAGLAX [Concomitant]
     Route: 048
     Dates: start: 20060425, end: 20060502
  5. NU-LOTAN [Concomitant]
     Route: 048
     Dates: start: 20060427, end: 20060516
  6. ARTIST [Concomitant]
     Route: 048
     Dates: start: 20060428, end: 20060516
  7. MEVALOTIN [Concomitant]
     Route: 048
     Dates: start: 20060502, end: 20060517
  8. TAKEPRON [Concomitant]
     Route: 048
     Dates: start: 20060516, end: 20060530
  9. HERBESSER [Concomitant]
     Route: 048
     Dates: start: 20060516, end: 20060530
  10. SIGMART [Concomitant]
     Route: 048
     Dates: start: 20060516, end: 20060530
  11. FENOFIBRATE [Concomitant]
     Route: 048
     Dates: start: 20060518, end: 20060530

REACTIONS (4)
  - CHOLESTASIS [None]
  - HEPATIC FUNCTION ABNORMAL [None]
  - HEPATOCELLULAR DAMAGE [None]
  - LEUKOPENIA [None]
